FAERS Safety Report 5285743-2 (Version None)
Quarter: 2007Q1

REPORT INFORMATION
  Report Type: 
  Country: None (occurrence: None)
  Receive Date: 20070126
  Receipt Date: 20060727
  Transmission Date: 20070707
  Serious: No
  Sender: FDA-Public Use
  Company Number: 2006CT001173

PATIENT
  Age: 18 Year
  Sex: Male
  Weight: 38 kg

DRUGS (8)
  1. VENTAVIS [Suspect]
     Indication: PULMONARY HYPERTENSION
     Dosage: SEE IMAGE
     Route: 055
     Dates: start: 20060727, end: 20060727
  2. VENTAVIS [Suspect]
     Indication: PULMONARY HYPERTENSION
     Dosage: SEE IMAGE
     Route: 055
     Dates: start: 20060727, end: 20060727
  3. WARFARIN SODIUM [Concomitant]
  4. ASPIRIN [Concomitant]
  5. DIGOXIN [Concomitant]
  6. SPIRONOLACTONE [Concomitant]
  7. OXYGEN [Concomitant]
  8. TRACLEER [Concomitant]

REACTIONS (1)
  - DROOLING [None]
